FAERS Safety Report 5386189-9 (Version None)
Quarter: 2007Q3

REPORT INFORMATION
  Report Type: 
  Country: None (occurrence: None)
  Receive Date: 20070710
  Receipt Date: 20070710
  Transmission Date: 20080115
  Serious: Yes (Hospitalization)
  Sender: FDA-Public Use
  Company Number: None

PATIENT
  Sex: Female
  Weight: 88.6 kg

DRUGS (2)
  1. HUMIRA [Suspect]
     Indication: RHEUMATOID ARTHRITIS
     Dosage: 40 MG -0.8 ML- EVERY 2 WEEKS SQ
     Route: 058
     Dates: start: 20060601, end: 20070601
  2. METHOTREXATE [Concomitant]

REACTIONS (1)
  - CONVULSION [None]
